FAERS Safety Report 7347387-8 (Version None)
Quarter: 2011Q1

REPORT INFORMATION
  Report Type: 
  Country: None (occurrence: None)
  Receive Date: 20110311
  Receipt Date: 20110302
  Transmission Date: 20110831
  Serious: Yes (Hospitalization, Other)
  Sender: FDA-Public Use
  Company Number: JP-ROCHE-762208

PATIENT
  Sex: Female
  Weight: 80 kg

DRUGS (18)
  1. TAMIFLU [Suspect]
     Indication: INFLUENZA
     Route: 048
     Dates: start: 20110207, end: 20110207
  2. LEVEMIR [Concomitant]
     Route: 058
     Dates: start: 20110207
  3. TAMIFLU [Suspect]
     Route: 048
     Dates: start: 20110208, end: 20110208
  4. DEPAKENE [Concomitant]
     Route: 048
     Dates: start: 20110207
  5. RISPERDAL [Concomitant]
     Route: 048
     Dates: start: 20110207
  6. DIAZEPAM [Concomitant]
     Dates: start: 20110207
  7. NOVORAPID [Concomitant]
     Route: 058
     Dates: start: 20110207
  8. THYRADIN S [Concomitant]
     Dosage: DOSE FORM: PERORAL AGENT
     Route: 048
     Dates: start: 19991201
  9. SLOW-K [Concomitant]
     Route: 048
     Dates: start: 19991201, end: 20110207
  10. PREMARIN [Concomitant]
     Route: 048
     Dates: start: 19991201, end: 20110207
  11. TAMIFLU [Suspect]
     Route: 048
     Dates: start: 20110209, end: 20110209
  12. CORTRIL [Concomitant]
     Route: 048
     Dates: start: 19991201
  13. ZYLORIC [Concomitant]
     Route: 048
     Dates: start: 19991201, end: 20110207
  14. LIPIDIL [Concomitant]
     Route: 048
     Dates: start: 19991201, end: 20110207
  15. FERROUS CITRATE [Concomitant]
     Dosage: DOSE FORM: PERORAL AGENT
     Route: 048
     Dates: start: 19991201, end: 20110207
  16. PROVERA [Concomitant]
     Route: 048
     Dates: start: 19991201, end: 20110207
  17. DESMOPRESSIN ACETATE [Concomitant]
     Route: 045
     Dates: start: 19991201, end: 20110207
  18. DESMOPRESSIN ACETATE [Concomitant]
     Route: 045
     Dates: start: 20110215

REACTIONS (3)
  - COMA [None]
  - PNEUMONIA [None]
  - RENAL FAILURE ACUTE [None]
